FAERS Safety Report 21960199 (Version 1)
Quarter: 2023Q1

REPORT INFORMATION
  Report Type: Spontaneous
  Country: US (occurrence: US)
  Receive Date: 20230207
  Receipt Date: 20230207
  Transmission Date: 20230418
  Serious: No
  Sender: FDA-Public Use
  Company Number: US-GSKCCFUS-Case-01618538_AE-91407

PATIENT
  Age: 80 Year
  Sex: Male

DRUGS (1)
  1. TRELEGY ELLIPTA [Suspect]
     Active Substance: FLUTICASONE FUROATE\UMECLIDINIUM BROMIDE\VILANTEROL TRIFENATATE
     Indication: Product used for unknown indication
     Dosage: UNK
     Route: 055
     Dates: start: 20221013, end: 20221025

REACTIONS (2)
  - Dysphonia [Not Recovered/Not Resolved]
  - Vocal cord paralysis [Not Recovered/Not Resolved]

NARRATIVE: CASE EVENT DATE: 20221021
